FAERS Safety Report 5491659-9 (Version None)
Quarter: 2007Q4

REPORT INFORMATION
  Report Type: 
  Country: None (occurrence: None)
  Receive Date: 20071022
  Receipt Date: 20071009
  Transmission Date: 20080405
  Serious: Yes (Hospitalization)
  Sender: FDA-Public Use
  Company Number: FR-BAYER-200710585BFR

PATIENT
  Age: 87 Year
  Sex: Female

DRUGS (3)
  1. CIFLOX [Suspect]
     Indication: ECZEMA
     Route: 048
     Dates: start: 20070319, end: 20070406
  2. FLAGYL [Suspect]
     Indication: ECZEMA
     Route: 048
     Dates: start: 20070319, end: 20070328
  3. ZELITREX [Concomitant]
     Indication: HERPES ZOSTER
     Route: 048
     Dates: start: 20070112, end: 20070119

REACTIONS (1)
  - ACUTE GENERALISED EXANTHEMATOUS PUSTULOSIS [None]
